FAERS Safety Report 9981988 (Version 1)
Quarter: 2014Q1

REPORT INFORMATION
  Report Type: Spontaneous
  Country: US (occurrence: None)
  Receive Date: 20140306
  Receipt Date: 20140306
  Transmission Date: 20141002
  Serious: Yes (Hospitalization)
  Sender: FDA-Public Use
  Company Number: None

PATIENT
  Age: 64 Year
  Sex: Female
  Weight: 129.5 kg

DRUGS (8)
  1. CYCLOPHOSPHAMIDE [Suspect]
  2. DOXORUBICIN HYDROCHLORIDE [Suspect]
  3. ENULAPRIL [Concomitant]
  4. GLICLAZIDE [Concomitant]
  5. INDAPAMIDE [Concomitant]
  6. JANUVIA [Concomitant]
  7. METFORMIN [Concomitant]
  8. SIMVASTIN [Concomitant]

REACTIONS (5)
  - Catheter site pain [None]
  - Catheter site discharge [None]
  - Culture positive [None]
  - Staphylococcal bacteraemia [None]
  - Apnoea [None]
